FAERS Safety Report 13440510 (Version 1)
Quarter: 2017Q2

REPORT INFORMATION
  Report Type: Report from Study
  Country: None (occurrence: TR)
  Receive Date: 20170413
  Receipt Date: 20170413
  Transmission Date: 20170830
  Serious: Yes (Hospitalization)
  Sender: FDA-Public Use
  Company Number: TR-ABBVIE-17P-161-1915049-00

PATIENT
  Age: 60 Year
  Sex: Male
  Weight: 65 kg

DRUGS (9)
  1. LARGACTIL [Concomitant]
     Active Substance: CHLORPROMAZINE
     Indication: ANTIEMETIC SUPPORTIVE CARE
     Dosage: 3X25
     Route: 048
     Dates: start: 201701
  2. OMETROL [Concomitant]
     Indication: GASTROINTESTINAL DISORDER
     Route: 048
     Dates: start: 201611
  3. GYREX [Concomitant]
     Indication: SLEEP DISORDER
     Dates: start: 201608
  4. PROMEGA [Concomitant]
     Indication: PRODUCT USED FOR UNKNOWN INDICATION
     Route: 048
     Dates: start: 201701
  5. NERVOGIL [Concomitant]
     Indication: PARKINSON^S DISEASE
     Route: 048
     Dates: start: 2015
  6. LANSOR [Concomitant]
     Active Substance: LANSOPRAZOLE
     Indication: GASTROINTESTINAL DISORDER
     Route: 048
     Dates: start: 201611
  7. DUODOPA [Suspect]
     Active Substance: CARBIDOPA\LEVODOPA
     Indication: PARKINSON^S DISEASE
     Dosage: MORNING DOSE: 7,50 ML?CONTINUOUS DOSE : 5,3 ML?EXTRA DOSE: 1 ML
     Route: 050
     Dates: start: 20161102
  8. UROREC [Concomitant]
     Active Substance: SILODOSIN
     Indication: PROSTATIC DISORDER
     Route: 048
     Dates: start: 2011
  9. COENZ QH [Concomitant]
     Indication: VITAMIN SUPPLEMENTATION
     Route: 048
     Dates: start: 201701

REACTIONS (1)
  - Secretion discharge [Not Recovered/Not Resolved]

NARRATIVE: CASE EVENT DATE: 20170319
